FAERS Safety Report 5913832-5 (Version None)
Quarter: 2008Q4

REPORT INFORMATION
  Report Type: 
  Country: None (occurrence: None)
  Receive Date: 20081009
  Receipt Date: 20081001
  Transmission Date: 20090506
  Serious: Yes (Other)
  Sender: FDA-Public Use
  Company Number: A0739573A

PATIENT
  Age: 61 Year
  Sex: Female

DRUGS (8)
  1. ZYBAN [Suspect]
     Indication: SMOKING CESSATION THERAPY
     Dosage: 1TAB TWICE PER DAY
     Route: 048
     Dates: start: 20071201, end: 20071227
  2. IBUPROFEN [Concomitant]
  3. EFFEXOR [Concomitant]
  4. LEVOTHYROXINE SODIUM [Concomitant]
  5. OXYCONTIN [Concomitant]
  6. SEROQUEL [Concomitant]
  7. OXYCODONE HCL [Concomitant]
  8. RISPERDAL [Concomitant]

REACTIONS (7)
  - ABNORMAL BEHAVIOUR [None]
  - BALANCE DISORDER [None]
  - FALL [None]
  - INTENTIONAL SELF-INJURY [None]
  - MENTAL DISORDER [None]
  - UPPER LIMB FRACTURE [None]
  - WRIST FRACTURE [None]
